FAERS Safety Report 4372380-7 (Version None)
Quarter: 2004Q2

REPORT INFORMATION
  Report Type: 
  Country: None (occurrence: None)
  Receive Date: 20040602
  Receipt Date: 20040524
  Transmission Date: 20050107
  Serious: Yes (Hospitalization)
  Sender: FDA-Public Use
  Company Number: CIP04000375

PATIENT
  Age: 64 Year
  Sex: Female

DRUGS (2)
  1. BENET (RISEDRONATE SODIUM) [Suspect]
     Indication: OSTEOPOROSIS
     Dosage: 2.5 MG DAILY, ORAL
     Route: 048
     Dates: start: 20030101, end: 20031221
  2. ALFACALCIDOL (ALFACALCIDOL) [Concomitant]

REACTIONS (13)
  - BLOOD IMMUNOGLOBULIN G DECREASED [None]
  - BLOOD THYROID STIMULATING HORMONE DECREASED [None]
  - BONE MARROW DEPRESSION [None]
  - COMPLEMENT FACTOR DECREASED [None]
  - GASTRIC DISORDER [None]
  - GASTRIC ULCER [None]
  - GASTRIC ULCER HAEMORRHAGE [None]
  - HAEMATEMESIS [None]
  - HELICOBACTER INFECTION [None]
  - IDIOPATHIC THROMBOCYTOPENIC PURPURA [None]
  - MALLORY-WEISS SYNDROME [None]
  - MEDICAL DEVICE COMPLICATION [None]
  - MELAENA [None]
